FAERS Safety Report 16056449 (Version 1)
Quarter: 2019Q1

REPORT INFORMATION
  Report Type: Spontaneous
  Country: US (occurrence: US)
  Receive Date: 20190208
  Receipt Date: 20190208
  Transmission Date: 20190418
  Serious: Yes (Hospitalization, Other)
  Sender: FDA-Public Use
  Company Number: None

PATIENT
  Age: 58 Year
  Sex: Male

DRUGS (4)
  1. METFORMIN [Concomitant]
     Active Substance: METFORMIN HYDROCHLORIDE
  2. ATORVASTATIN [Concomitant]
     Active Substance: ATORVASTATIN
  3. CAPECITABINE TAB 500MG [Suspect]
     Active Substance: CAPECITABINE
     Dosage: 4 TABLETS QAM AND 3 QP BID ORAL??02/09/2019
     Route: 048
  4. GABAPETIN [Concomitant]
     Active Substance: GABAPENTIN

REACTIONS (2)
  - Abdominal pain [None]
  - Diabetes mellitus [None]

NARRATIVE: CASE EVENT DATE: 20190120
